FAERS Safety Report 18182759 (Version 1)
Quarter: 2020Q3

REPORT INFORMATION
  Report Type: Report from Study
  Country: FR (occurrence: FR)
  Receive Date: 20200821
  Receipt Date: 20200821
  Transmission Date: 20201103
  Serious: Yes (Death)
  Sender: FDA-Public Use
  Company Number: FR-COVIS PHARMA B.V.-2013P1015758

PATIENT
  Age: 67 Year
  Sex: Male

DRUGS (3)
  1. RILUZOLE. [Suspect]
     Active Substance: RILUZOLE
     Indication: AMYOTROPHIC LATERAL SCLEROSIS
     Dosage: 100 MG
     Route: 048
     Dates: start: 19930223, end: 19940814
  2. ACETYLSALICYLIC ACID [Concomitant]
     Active Substance: ASPIRIN
  3. AMIODARONE [Concomitant]
     Active Substance: AMIODARONE

REACTIONS (2)
  - Pancreatitis [Fatal]
  - Pleural effusion [Fatal]

NARRATIVE: CASE EVENT DATE: 19940814
